FAERS Safety Report 8304077-2 (Version None)
Quarter: 2012Q2

REPORT INFORMATION
  Report Type: 
  Country: None (occurrence: None)
  Receive Date: 20120418
  Receipt Date: 20111027
  Transmission Date: 20120825
  Serious: No
  Sender: FDA-Public Use
  Company Number: AEUSA201100304

PATIENT
  Age: 66 Year
  Sex: Male
  Weight: 65.7716 kg

DRUGS (1)
  1. PROLASTIN-C [Suspect]
     Indication: ALPHA-1 ANTI-TRYPSIN DEFICIENCY
     Dosage: UNKNOWN, QW, IV
     Route: 042
     Dates: start: 20100601

REACTIONS (4)
  - LUNG DISORDER [None]
  - PAIN [None]
  - COUGH [None]
  - DRUG EFFECT DECREASED [None]
